FAERS Safety Report 7322949-2 (Version None)
Quarter: 2011Q1

REPORT INFORMATION
  Report Type: 
  Country: None (occurrence: None)
  Receive Date: 20110301
  Receipt Date: 20110217
  Transmission Date: 20110831
  Serious: Yes (Hospitalization)
  Sender: FDA-Public Use
  Company Number: PHFR2010GB01251

PATIENT
  Sex: Male

DRUGS (5)
  1. VENLAFAXINE [Concomitant]
  2. ALFACALCIDOL [Concomitant]
  3. CLOZARIL [Suspect]
     Indication: SCHIZOPHRENIA
     Dosage: UNK
     Route: 048
     Dates: start: 19980717
  4. LORAZEPAM [Concomitant]
  5. DEPAKOTE [Concomitant]

REACTIONS (9)
  - NEPHROPATHY [None]
  - MENTAL IMPAIRMENT [None]
  - HYPERCHOLESTEROLAEMIA [None]
  - ABDOMINAL DISCOMFORT [None]
  - HYPERTENSION [None]
  - TYPE 2 DIABETES MELLITUS [None]
  - BLOOD CREATININE INCREASED [None]
  - RENAL FAILURE [None]
  - OBESITY [None]
